FAERS Safety Report 24070527 (Version 1)
Quarter: 2024Q3

REPORT INFORMATION
  Report Type: Report from Study
  Country: CA (occurrence: CA)
  Receive Date: 20240710
  Receipt Date: 20240710
  Transmission Date: 20241016
  Serious: No
  Sender: ROCHE
  Company Number: CA-ROCHE-3563823

PATIENT
  Age: 76 Year
  Sex: Male

DRUGS (1)
  1. VABYSMO [Suspect]
     Active Substance: FARICIMAB\FARICIMAB-SVOA
     Indication: Neovascular age-related macular degeneration
     Dosage: 6 MG/0,05 ML
     Route: 050
     Dates: start: 20240124, end: 20240424

REACTIONS (2)
  - Drug ineffective [Unknown]
  - No adverse event [Unknown]
